FAERS Safety Report 9366431 (Version 2)
Quarter: 2013Q4

REPORT INFORMATION
  Report Type: Spontaneous
  Country: US (occurrence: None)
  Receive Date: 20130620
  Receipt Date: 20131022
  Transmission Date: 20140711
  Serious: Yes (Hospitalization)
  Sender: FDA-Public Use
  Company Number: VAL_02592_2013

PATIENT
  Age: 68 Year
  Sex: Male
  Weight: 90 kg

DRUGS (20)
  1. METOPROLOL [Suspect]
     Indication: PRODUCT USED FOR UNKNOWN INDICATION
     Dosage: 1/2 BID.
  2. LISINOPRIL [Suspect]
     Indication: PRODUCT USED FOR UNKNOWN INDICATION
     Route: 048
  3. CANAKINUMAB [Suspect]
     Indication: CARDIOVASCULAR EVENT PROPHYLAXIS
     Dosage: DF CODE NOT BROKEN?
     Route: 058
     Dates: start: 20110927, end: 20130604
  4. CANAKINUMAB [Suspect]
     Indication: DIABETES MELLITUS
     Dosage: DF CODE NOT BROKEN?
     Route: 058
     Dates: start: 20110927, end: 20130604
  5. ASPIRIN [Concomitant]
  6. CLARITIN / 00917501/ [Concomitant]
  7. FISH OIL [Concomitant]
  8. IMDUR [Concomitant]
  9. MULTIVITAMINS [Concomitant]
  10. NITROGLYCERIN [Concomitant]
  11. PLAVIX [Concomitant]
  12. PRAVASTATINA SODICA [Concomitant]
  13. RANEXA [Concomitant]
  14. SLO-NIACIN [Concomitant]
  15. STOOL SOFTENER [Concomitant]
  16. TYLENOL / 00020001/ [Concomitant]
  17. XANAX [Concomitant]
  18. ULTRAM / 00599202/ [Concomitant]
  19. NEURONTIN [Concomitant]
  20. ZESTRIL [Suspect]
     Indication: HYPERTENSION
     Dosage: 20 MG QD

REACTIONS (5)
  - Angina pectoris [None]
  - Nausea [None]
  - Asthenia [None]
  - Dizziness [None]
  - Bradycardia [None]
